FAERS Safety Report 10184564 (Version 3)
Quarter: 2014Q3

REPORT INFORMATION
  Report Type: Spontaneous
  Country: CH (occurrence: CH)
  Receive Date: 20140521
  Receipt Date: 20140729
  Transmission Date: 20150326
  Serious: Yes (Other)
  Sender: FDA-Public Use
  Company Number: CH-BEH-2014041661

PATIENT
  Age: 29 Year
  Sex: Female

DRUGS (1)
  1. PRIVIGEN [Suspect]
     Active Substance: HUMAN IMMUNOGLOBULIN G
     Indication: GUILLAIN-BARRE SYNDROME
     Dosage: 0.4G/KG
     Route: 042
     Dates: start: 20140329, end: 20140402

REACTIONS (2)
  - Exposure during breast feeding [Unknown]
  - CSF cell count increased [Unknown]

NARRATIVE: CASE EVENT DATE: 20140329
